FAERS Safety Report 9417613 (Version 1)
Quarter: 2013Q3

REPORT INFORMATION
  Report Type: Spontaneous
  Country: PR (occurrence: PR)
  Receive Date: 20130724
  Receipt Date: 20130724
  Transmission Date: 20140515
  Serious: No
  Sender: FDA-Public Use
  Company Number: PR-BRISTOL-MYERS SQUIBB COMPANY-18978338

PATIENT
  Sex: Male

DRUGS (2)
  1. ELIQUIS [Suspect]
  2. NAMENDA [Concomitant]

REACTIONS (1)
  - Pruritus [Unknown]
